FAERS Safety Report 5136549-6 (Version None)
Quarter: 2006Q4

REPORT INFORMATION
  Report Type: 
  Country: None (occurrence: None)
  Receive Date: 20061023
  Receipt Date: 20061008
  Transmission Date: 20070319
  Serious: Yes (Other)
  Sender: FDA-Public Use
  Company Number: 2006123565

PATIENT

DRUGS (1)
  1. LYRICA [Suspect]
     Dosage: 100 MG (50 MG, 2 IN 1 D)

REACTIONS (1)
  - RENAL FAILURE [None]
